FAERS Safety Report 8648078 (Version 2)
Quarter: 2014Q1

REPORT INFORMATION
  Report Type: Spontaneous
  Country: US (occurrence: None)
  Receive Date: 20120323
  Receipt Date: 20130305
  Transmission Date: 20141002
  Serious: Yes (Other)
  Sender: FDA-Public Use
  Company Number: 163-21880-11100576

PATIENT
  Age: 75 Year
  Sex: Male
  Weight: 83.01 kg

DRUGS (17)
  1. REVLIMID [Suspect]
     Indication: PLASMA CELL MYELOMA
     Dosage: 15 MG, 21/7, PO; 10 MG, 1 IN 1 D, PO
     Route: 048
     Dates: start: 20110913, end: 20110926
  2. PROZAC [Concomitant]
  3. ASA (ACETYLSALICYLIC ACID) [Concomitant]
  4. DEXAMETHASONE (DEXAMETHASONE) [Concomitant]
  5. SYNTHROID [Concomitant]
  6. LIPITOR [Concomitant]
  7. LORAZEPAM [Concomitant]
  8. VITAMIN E [Concomitant]
  9. AVODART [Concomitant]
  10. VITAMIN B12 [Concomitant]
  11. VITAMINS [Concomitant]
  12. PHYTONADIONE [Concomitant]
  13. HYDROCHLOROTHIAZIDE [Concomitant]
  14. NEXIUM (ESOMEPRAZOLE) [Concomitant]
  15. SUDAFED 12 HOUR [Concomitant]
  16. NABUMETONE (RELAFEN) [Concomitant]
  17. POTASSIUM CHLORIDE [Concomitant]

REACTIONS (3)
  - Neutropenia [None]
  - Platelet count decreased [None]
  - Thrombocytopenia [None]
